FAERS Safety Report 6442143-7 (Version None)
Quarter: 2009Q4

REPORT INFORMATION
  Report Type: 
  Country: None (occurrence: None)
  Receive Date: 20091116
  Receipt Date: 20091111
  Transmission Date: 20100525
  Serious: Yes (Other)
  Sender: FDA-Public Use
  Company Number: PHEH2009US15266

PATIENT
  Age: 59 Year
  Sex: Female
  Weight: 74.376 kg

DRUGS (8)
  1. ENABLEX [Suspect]
     Dosage: 15 MG, QD
     Route: 048
     Dates: start: 20061001, end: 20091021
  2. FOSAMAX [Concomitant]
     Dosage: UNK, UNK
  3. LEVOTHYROXINE SODIUM [Concomitant]
     Indication: THYROID DISORDER
     Dosage: 0.088 MG, UNK
  4. VERAPAMIL [Concomitant]
     Indication: HYPERTENSION
     Dosage: 240 MG, UNK
     Route: 048
  5. VALTREX [Concomitant]
     Dosage: UNK, UNK
  6. CELEXA [Concomitant]
     Indication: DEPRESSION
     Dosage: 20 MG, UNK
  7. NIACIN [Concomitant]
     Dosage: UNK, UNK
  8. PREMARIN [Concomitant]
     Dosage: UNK, UNK

REACTIONS (1)
  - ELECTROCARDIOGRAM QT PROLONGED [None]
